FAERS Safety Report 14922607 (Version 1)
Quarter: 2018Q2

REPORT INFORMATION
  Report Type: Spontaneous
  Country: MX (occurrence: MX)
  Receive Date: 20180522
  Receipt Date: 20180522
  Transmission Date: 20180711
  Serious: Yes (Other)
  Sender: FDA-Public Use
  Company Number: MX-CONCORDIA PHARMACEUTICALS INC.-GSH201805-001723

PATIENT
  Sex: Male

DRUGS (2)
  1. FINASTERIDE. [Concomitant]
     Active Substance: FINASTERIDE
     Dates: start: 2013
  2. ALFUZOSIN [Suspect]
     Active Substance: ALFUZOSIN
     Indication: BENIGN PROSTATIC HYPERPLASIA
     Route: 048
     Dates: start: 2003

REACTIONS (3)
  - Cardiac operation [Unknown]
  - Nocturia [Not Recovered/Not Resolved]
  - Product use issue [Unknown]
